FAERS Safety Report 14258712 (Version 1)
Quarter: 2017Q4

REPORT INFORMATION
  Report Type: Spontaneous
  Country: US (occurrence: None)
  Receive Date: 20171207
  Receipt Date: 20171207
  Transmission Date: 20180321
  Serious: Yes (Death, Hospitalization)
  Sender: FDA-Public Use
  Company Number: None

PATIENT
  Age: 73 Year
  Sex: Male
  Weight: 56.7 kg

DRUGS (2)
  1. OPDIVO [Suspect]
     Active Substance: NIVOLUMAB
     Indication: NON-SMALL CELL LUNG CANCER
     Dates: start: 20161118, end: 20170405
  2. OPDIVO [Suspect]
     Active Substance: NIVOLUMAB
     Indication: ASBESTOSIS
     Dates: start: 20161118, end: 20170405

REACTIONS (10)
  - Platelet count decreased [None]
  - Seizure [None]
  - Hepatic enzyme increased [None]
  - Pneumonia [None]
  - Pneumonitis [None]
  - Weight decreased [None]
  - Cerebral disorder [None]
  - Abnormal faeces [None]
  - Gastric disorder [None]
  - Asthenia [None]

NARRATIVE: CASE EVENT DATE: 20170406
